FAERS Safety Report 6377563-2 (Version None)
Quarter: 2009Q3

REPORT INFORMATION
  Report Type: 
  Country: None (occurrence: None)
  Receive Date: 20090925
  Receipt Date: 20090915
  Transmission Date: 20100115
  Serious: Yes (Hospitalization, Other)
  Sender: FDA-Public Use
  Company Number: CA-ABBOTT-09P-028-0594188-00

PATIENT
  Sex: Female
  Weight: 29.056 kg

DRUGS (6)
  1. HUMIRA [Suspect]
     Indication: CROHN'S DISEASE
     Route: 058
     Dates: start: 20090706
  2. HUMIRA [Suspect]
     Dosage: LOADING DOSE
     Dates: start: 20090706
  3. PREDNISONE TAB [Suspect]
     Indication: DRUG USE FOR UNKNOWN INDICATION
  4. IRON [Concomitant]
     Indication: DRUG USE FOR UNKNOWN INDICATION
  5. PREVACID [Concomitant]
     Indication: DRUG USE FOR UNKNOWN INDICATION
  6. HYDROCORTISONE [Concomitant]
     Indication: DRUG USE FOR UNKNOWN INDICATION

REACTIONS (7)
  - APPENDICITIS [None]
  - BLADDER DISORDER [None]
  - BLOOD GROWTH HORMONE DECREASED [None]
  - CYSTITIS [None]
  - GROWTH RETARDATION [None]
  - HEART RATE INCREASED [None]
  - SMALL INTESTINAL OBSTRUCTION [None]
